FAERS Safety Report 9135326 (Version 1)
Quarter: 2013Q1

REPORT INFORMATION
  Report Type: Spontaneous
  Country: US (occurrence: US)
  Receive Date: 20130304
  Receipt Date: 20130304
  Transmission Date: 20140127
  Serious: No
  Sender: FDA-Public Use
  Company Number: US-ALLERGAN-1202993US

PATIENT
  Age: 16 Year
  Sex: Male

DRUGS (1)
  1. TAZORAC [Suspect]
     Indication: PRODUCT USED FOR UNKNOWN INDICATION
     Dosage: 1 APPLICATION
     Route: 061
     Dates: start: 20120225, end: 20120225

REACTIONS (3)
  - Application site paraesthesia [Not Recovered/Not Resolved]
  - Application site pain [Not Recovered/Not Resolved]
  - Skin exfoliation [Not Recovered/Not Resolved]
